FAERS Safety Report 7789725-8 (Version None)
Quarter: 2011Q3

REPORT INFORMATION
  Report Type: 
  Country: None (occurrence: None)
  Receive Date: 20110930
  Receipt Date: 20110927
  Transmission Date: 20111222
  Serious: Yes (Hospitalization)
  Sender: FDA-Public Use
  Company Number: AU-BRISTOL-MYERS SQUIBB COMPANY-15462286

PATIENT
  Age: 73 Year
  Sex: Male
  Weight: 106 kg

DRUGS (8)
  1. ASPIRIN [Concomitant]
  2. ENALAPRIL MALEATE [Concomitant]
  3. CARVEDILOL [Concomitant]
  4. CLOPIDOGREL BISULFATE [Concomitant]
  5. SPRYCEL [Suspect]
     Indication: CHRONIC MYELOID LEUKAEMIA
     Route: 048
     Dates: start: 20071123, end: 20071129
  6. METFORMIN HCL [Concomitant]
  7. LIPEX [Concomitant]
  8. FUROSEMIDE [Concomitant]

REACTIONS (7)
  - GLOMERULAR FILTRATION RATE DECREASED [None]
  - PLEURAL EFFUSION [None]
  - ASCITES [None]
  - PULMONARY OEDEMA [None]
  - DRUG INTOLERANCE [None]
  - BLOOD CREATININE INCREASED [None]
  - OEDEMA PERIPHERAL [None]
